FAERS Safety Report 10749241 (Version 1)
Quarter: 2015Q1

REPORT INFORMATION
  Report Type: Spontaneous
  Country: CN (occurrence: CN)
  Receive Date: 20150129
  Receipt Date: 20150129
  Transmission Date: 20150721
  Serious: Yes (Disabling, Other)
  Sender: FDA-Public Use
  Company Number: CN-GILEAD-2015-0134314

PATIENT
  Age: 71 Year
  Sex: Female

DRUGS (1)
  1. HEPSERA [Suspect]
     Active Substance: ADEFOVIR DIPIVOXIL
     Indication: CHRONIC HEPATITIS B
     Dosage: 10 MG, QD
     Route: 048
     Dates: start: 20080101, end: 20140714

REACTIONS (11)
  - Osteoporosis [Unknown]
  - Vomiting [Unknown]
  - Fanconi syndrome acquired [Not Recovered/Not Resolved]
  - Hypokinesia [Unknown]
  - Proteinuria [Unknown]
  - Urine abnormality [Unknown]
  - Sternal fracture [Unknown]
  - Pain [Unknown]
  - Decreased appetite [Unknown]
  - Nausea [Unknown]
  - Renal impairment [Unknown]

NARRATIVE: CASE EVENT DATE: 20140714
